FAERS Safety Report 22023095 (Version 3)
Quarter: 2023Q2

REPORT INFORMATION
  Report Type: Report from Study
  Country: US (occurrence: US)
  Receive Date: 20230222
  Receipt Date: 20230414
  Transmission Date: 20230721
  Serious: Yes (Other)
  Sender: FDA-Public Use
  Company Number: US-ABBVIE-22K-163-4429466-00

PATIENT
  Age: 78 Year
  Sex: Male
  Weight: 115.66 kg

DRUGS (8)
  1. VENCLEXTA [Suspect]
     Active Substance: VENETOCLAX
     Indication: Neoplasm malignant
     Dosage: FORM STRENGTH: 100 MG??STOP DATE TEXT: LAST DOSE: 14-FEB-2023
     Route: 048
     Dates: start: 20211214
  2. VENCLEXTA [Suspect]
     Active Substance: VENETOCLAX
     Indication: Neoplasm malignant
     Route: 048
  3. VENCLEXTA [Suspect]
     Active Substance: VENETOCLAX
     Indication: Neoplasm malignant
     Route: 048
  4. IPRATROPIUM BROMIDE [Concomitant]
     Active Substance: IPRATROPIUM BROMIDE\IPRATROPIUM BROMIDE ANHYDROUS
     Indication: Nasal congestion
     Dosage: MORNING AND EVENING 15-FEB-2023
     Dates: start: 202208
  5. CLARITIN [Concomitant]
     Active Substance: LORATADINE
     Indication: Sinus disorder
     Dosage: OTC?DURATION TEXT:  LAST DOSE: 14-FEB-2023
     Route: 048
     Dates: start: 1998
  6. ALLEGRA [Concomitant]
     Active Substance: FEXOFENADINE HYDROCHLORIDE
     Indication: Product used for unknown indication
     Dates: start: 1998
  7. SINGULAIR [Concomitant]
     Active Substance: MONTELUKAST SODIUM
     Indication: Sinus disorder
     Dosage: STOP DATE TEXT: LAST DOSE: 14-FEB-2023
     Dates: start: 2003
  8. PRESERVISION AREDS 2 multiple plus vitamin [Concomitant]
     Indication: Cataract
     Dosage: 2 TABLETS DAILY IN MORNING AND EVENING?DURATION TEXT:  LAST DOSE:14-FEB-2023
     Route: 048
     Dates: start: 2021

REACTIONS (5)
  - Pneumonia [Recovered/Resolved]
  - Visual impairment [Not Recovered/Not Resolved]
  - Arthralgia [Not Recovered/Not Resolved]
  - Cataract [Recovered/Resolved]
  - Osteoarthritis [Unknown]

NARRATIVE: CASE EVENT DATE: 20220701
